FAERS Safety Report 9105899 (Version 1)
Quarter: 2013Q1

REPORT INFORMATION
  Report Type: Spontaneous
  Country: JP (occurrence: JP)
  Receive Date: 20130221
  Receipt Date: 20130221
  Transmission Date: 20140127
  Serious: Yes (Death)
  Sender: FDA-Public Use
  Company Number: JP-ASTELLAS-2013JP002247

PATIENT
  Age: 68 Year
  Sex: Female

DRUGS (11)
  1. FUNGUARD [Suspect]
     Indication: ASPERGILLUS INFECTION
     Dosage: 300 MG, UNKNOWN/D
     Route: 042
     Dates: start: 201103
  2. FUNGUARD [Suspect]
     Indication: BRONCHOPULMONARY ASPERGILLOSIS
  3. EPINEPHRINE [Concomitant]
     Indication: CARDIAC ARREST
     Dosage: 1 MG, UNKNOWN/D
     Route: 041
     Dates: start: 201103
  4. MIDAZOLAM [Concomitant]
     Dosage: UNK
     Route: 065
     Dates: start: 201103
  5. DOPAMINE [Concomitant]
     Dosage: UNK
     Route: 041
     Dates: start: 201103
  6. CEFOTIAM [Concomitant]
     Indication: PNEUMONIA ASPIRATION
     Dosage: 2 G, UNKNOWN/D
     Route: 041
     Dates: start: 201103
  7. CEFOTIAM [Concomitant]
     Indication: NEAR DROWNING
  8. PIPERACILLIN/TAZOBACTAM [Concomitant]
     Indication: PNEUMONIA ASPIRATION
     Dosage: 18 G, UNKNOWN/D
     Route: 065
     Dates: start: 201103
  9. PIPERACILLIN/TAZOBACTAM [Concomitant]
     Indication: NEAR DROWNING
  10. CIPROFLOXACIN [Concomitant]
     Indication: ASPERGILLUS INFECTION
     Dosage: 900 MG, UNKNOWN/D
     Route: 065
     Dates: start: 201103
  11. CIPROFLOXACIN [Concomitant]
     Indication: BRONCHOPULMONARY ASPERGILLOSIS

REACTIONS (3)
  - Drug ineffective [Unknown]
  - Aspergillus infection [Fatal]
  - Bronchopulmonary aspergillosis [Fatal]
